FAERS Safety Report 9280256 (Version 1)
Quarter: 2013Q2

REPORT INFORMATION
  Report Type: Spontaneous
  Country: US (occurrence: US)
  Receive Date: 20130509
  Receipt Date: 20130509
  Transmission Date: 20140414
  Serious: Yes (Other)
  Sender: FDA-Public Use
  Company Number: US-INCYTE CORPORATION-2013IN000506

PATIENT
  Age: 71 Year
  Sex: Male
  Weight: 65.31 kg

DRUGS (13)
  1. JAKAFI [Suspect]
     Indication: MYELOFIBROSIS
     Dosage: 15 MG, BID
     Route: 048
     Dates: start: 20130305, end: 201304
  2. JAKAFI [Suspect]
     Dosage: 20 MG, QAM + 15 MG, QPM
     Route: 048
     Dates: start: 20130403, end: 20130422
  3. JAKAFI [Suspect]
     Dosage: 20 MG, BID
     Route: 048
     Dates: start: 20130423
  4. NADOLOL [Concomitant]
  5. GLIPIZIDE [Concomitant]
  6. OMEPRAZOLE [Concomitant]
  7. MULTIPLE VITAMINS [Concomitant]
  8. TYLENOL [Concomitant]
  9. AMBIEN [Concomitant]
  10. ATIVAN [Concomitant]
     Dosage: UNK, PRN
  11. LYSINE [Concomitant]
  12. COUMADIN [Concomitant]
     Indication: DEEP VEIN THROMBOSIS
  13. ELIDEL [Concomitant]

REACTIONS (6)
  - Leukaemia [Not Recovered/Not Resolved]
  - Leukocytosis [Not Recovered/Not Resolved]
  - Fatigue [Not Recovered/Not Resolved]
  - Local swelling [Unknown]
  - Red blood cell count decreased [Unknown]
  - Haemoglobin decreased [Recovering/Resolving]
